FAERS Safety Report 10748426 (Version 2)
Quarter: 2015Q2

REPORT INFORMATION
  Report Type: Spontaneous
  Country: US (occurrence: None)
  Receive Date: 20150120
  Receipt Date: 20150420
  Transmission Date: 20150821
  Serious: No
  Sender: FDA-Public Use
  Company Number: AEGR000967

PATIENT
  Age: 78 Year
  Sex: Female
  Weight: 65.8 kg

DRUGS (15)
  1. ALBUTEROL. [Concomitant]
     Active Substance: ALBUTEROL
  2. IBUPROFEN. [Concomitant]
     Active Substance: IBUPROFEN
  3. LISINOPRIL. [Concomitant]
     Active Substance: LISINOPRIL
  4. OMEGA 3 (FISH OIL) [Concomitant]
     Active Substance: OMEGA-3 FATTY ACIDS
  5. EZETIMIBE. [Concomitant]
     Active Substance: EZETIMIBE
  6. VITAMIN E [Concomitant]
     Active Substance: .ALPHA.-TOCOPHEROL
  7. OMPERAZOLE [Concomitant]
     Active Substance: OMEPRAZOLE
  8. FERROUS SULFATE [Concomitant]
     Active Substance: FERROUS SULFATE\FERROUS SULFATE, DRIED
  9. FOLIC ACID. [Concomitant]
     Active Substance: FOLIC ACID
  10. SPIRIVA (TIOTROPIUM BROMIDE) [Concomitant]
  11. ALPRAZOLAM. [Concomitant]
     Active Substance: ALPRAZOLAM
  12. NITROGLYCERINE (GLYCERYL TRINITRATE) [Concomitant]
  13. ROSUVASTATIN [Concomitant]
     Active Substance: ROSUVASTATIN
  14. JUXTAPID [Suspect]
     Active Substance: LOMITAPIDE MESYLATE
     Indication: TYPE IIA HYPERLIPIDAEMIA
     Route: 048
     Dates: start: 20130827, end: 20131030
  15. AMLODIPINE [Concomitant]
     Active Substance: AMLODIPINE BESYLATE

REACTIONS (1)
  - Spinal cord disorder [None]

NARRATIVE: CASE EVENT DATE: 20140306
